FAERS Safety Report 21388828 (Version 1)
Quarter: 2022Q3

REPORT INFORMATION
  Report Type: Spontaneous
  Country: US (occurrence: US)
  Receive Date: 20220929
  Receipt Date: 20220929
  Transmission Date: 20221027
  Serious: Yes (Death, Life-Threatening, Other)
  Sender: FDA-Public Use
  Company Number: US-JNJFOC-20220956855

PATIENT
  Age: 77 Year
  Sex: Female

DRUGS (3)
  1. HALOPERIDOL [Suspect]
     Active Substance: HALOPERIDOL
     Indication: Product used for unknown indication
     Route: 065
  2. OLANZAPINE [Suspect]
     Active Substance: OLANZAPINE
     Indication: Product used for unknown indication
     Route: 065
  3. QUETIAPINE [Suspect]
     Active Substance: QUETIAPINE
     Indication: Product used for unknown indication
     Route: 065

REACTIONS (10)
  - Toxicity to various agents [Fatal]
  - Respiratory depression [Unknown]
  - Coma [Unknown]
  - Myocardial ischaemia [Unknown]
  - Acute kidney injury [Unknown]
  - Neuroleptic malignant syndrome [Unknown]
  - Ventricular arrhythmia [Unknown]
  - Rhabdomyolysis [Unknown]
  - Hyperreflexia [Unknown]
  - Clonus [Unknown]
